FAERS Safety Report 5602003-8 (Version None)
Quarter: 2008Q1

REPORT INFORMATION
  Report Type: 
  Country: None (occurrence: None)
  Receive Date: 20080125
  Receipt Date: 20070516
  Transmission Date: 20080703
  Serious: No
  Sender: FDA-Public Use
  Company Number: US-KINGPHARMUSA00001-K200700609

PATIENT

DRUGS (3)
  1. TILADE [Suspect]
     Indication: ASTHMA
     Dosage: 8 PUFFS, QD
     Dates: start: 20070101
  2. ALBUTEROL [Concomitant]
     Indication: ASTHMA
     Dosage: UNK, PRN
  3. PULMICORT [Concomitant]
     Indication: ASTHMA
     Dosage: UNK, PRN

REACTIONS (1)
  - DRUG EFFECT DECREASED [None]
